FAERS Safety Report 10319297 (Version 2)
Quarter: 2014Q3

REPORT INFORMATION
  Report Type: Other
  Country: US (occurrence: US)
  Receive Date: 20140719
  Receipt Date: 20140719
  Transmission Date: 20150326
  Serious: Yes (Other)
  Sender: FDA-Public Use
  Company Number: US-GSKPPD-2014GSK000138

PATIENT
  Sex: Female
  Weight: 137.56 kg

DRUGS (5)
  1. AVANDIA [Suspect]
     Active Substance: ROSIGLITAZONE MALEATE
     Indication: DIABETES MELLITUS
     Route: 048
     Dates: start: 200105, end: 2005
  2. HYZAAR [Concomitant]
     Active Substance: HYDROCHLOROTHIAZIDE\LOSARTAN POTASSIUM
     Dosage: UNIT DOSE: 50/12.5G MG
  3. DEMADEX [Concomitant]
     Active Substance: TORSEMIDE
  4. POTASSIUM [Concomitant]
     Active Substance: POTASSIUM
  5. ADALAT [Concomitant]
     Active Substance: NIFEDIPINE

REACTIONS (1)
  - Cardiac failure congestive [None]
